FAERS Safety Report 9322631 (Version 2)
Quarter: 2013Q3

REPORT INFORMATION
  Report Type: Spontaneous
  Country: US (occurrence: US)
  Receive Date: 20130531
  Receipt Date: 20130805
  Transmission Date: 20140515
  Serious: Yes (Hospitalization, Other)
  Sender: FDA-Public Use
  Company Number: US-B.I. PHARMACEUTICALS,INC./RIDGEFIELD-2013-BI-14808BP

PATIENT
  Age: 62 Year
  Sex: Female

DRUGS (18)
  1. SPIRIVA [Suspect]
     Indication: CHRONIC OBSTRUCTIVE PULMONARY DISEASE
     Dosage: 18 MCG
     Route: 055
     Dates: start: 20130314
  2. ALBUTEROL [Concomitant]
     Indication: CHRONIC OBSTRUCTIVE PULMONARY DISEASE
     Route: 055
  3. CYMBALTA [Concomitant]
     Indication: DEPRESSION
     Dosage: 90 MG
     Route: 048
  4. DEPLIN [Concomitant]
     Dosage: 15 MG
     Route: 048
  5. ASPIRIN [Concomitant]
     Dosage: 81 MG
     Route: 048
  6. LISINOPRIL [Concomitant]
     Indication: HYPERTENSION
     Dosage: 30 MG
     Route: 048
  7. TRANXENE [Concomitant]
     Indication: ANXIETY
     Dosage: 45 MG
     Route: 048
  8. GABAPENTIN [Concomitant]
     Indication: NEUROPATHY PERIPHERAL
     Dosage: 1800 MG
     Route: 048
  9. LORTAB [Concomitant]
     Indication: PAIN IN EXTREMITY
     Dosage: STRENGTH:10-500 MG, DAILY DOSE:20-1000 MG
  10. AMBIEN [Concomitant]
     Indication: INSOMNIA
     Dosage: 5 MG
     Route: 048
  11. TRAZADONE [Concomitant]
     Indication: INSOMNIA
     Dosage: 50 MG
     Route: 048
  12. CALCIUM [Concomitant]
     Route: 048
  13. MAGNESIUM [Concomitant]
     Route: 048
  14. ZINC [Concomitant]
     Route: 048
  15. POTASSIUM [Concomitant]
     Dosage: 10 MEQ
     Route: 048
  16. MELATONIN [Concomitant]
     Dosage: 9 MG
     Route: 048
  17. VENTOLIN [Concomitant]
     Indication: CHRONIC OBSTRUCTIVE PULMONARY DISEASE
     Route: 055
  18. KLONOPIN [Concomitant]
     Indication: ANXIETY
     Dosage: 1.5 MG
     Route: 048

REACTIONS (8)
  - Anxiety [Recovered/Resolved]
  - Depression [Not Recovered/Not Resolved]
  - Mental disorder [Recovered/Resolved]
  - Cerebrovascular accident [Recovered/Resolved with Sequelae]
  - Bronchitis [Recovered/Resolved]
  - Local swelling [Not Recovered/Not Resolved]
  - Pain in extremity [Not Recovered/Not Resolved]
  - Product quality issue [Recovered/Resolved]
